FAERS Safety Report 7337378-5 (Version None)
Quarter: 2011Q1

REPORT INFORMATION
  Report Type: 
  Country: None (occurrence: None)
  Receive Date: 20110224
  Receipt Date: 20110217
  Transmission Date: 20110831
  Serious: Yes (Other)
  Sender: FDA-Public Use
  Company Number: ALA_01510_2011

PATIENT
  Sex: Male

DRUGS (1)
  1. REGLAN [Suspect]
     Indication: PRODUCT USED FOR UNKNOWN INDICATION
     Dosage: (DF ORAL)
     Route: 048
     Dates: start: 20020901, end: 20090801

REACTIONS (6)
  - EXTRAPYRAMIDAL DISORDER [None]
  - PARKINSON'S DISEASE [None]
  - TARDIVE DYSKINESIA [None]
  - ECONOMIC PROBLEM [None]
  - PRE-EXISTING DISEASE [None]
  - EMOTIONAL DISORDER [None]
